FAERS Safety Report 7741328-7 (Version None)
Quarter: 2011Q3

REPORT INFORMATION
  Report Type: 
  Country: None (occurrence: None)
  Receive Date: 20110909
  Receipt Date: 20110902
  Transmission Date: 20111222
  Serious: Yes (Other)
  Sender: FDA-Public Use
  Company Number: US-SANOFI-AVENTIS-2011SA049621

PATIENT
  Age: 75 Year
  Sex: Male

DRUGS (4)
  1. METOPROLOL TARTRATE [Concomitant]
     Dates: start: 20101130
  2. LISINOPRIL [Concomitant]
     Dates: start: 20101130
  3. SIMVASTATIN [Concomitant]
     Dates: start: 20101130
  4. PLAVIX [Suspect]
     Indication: STENT PLACEMENT
     Route: 048
     Dates: start: 20101130, end: 20110725

REACTIONS (2)
  - RETINAL HAEMORRHAGE [None]
  - BLINDNESS UNILATERAL [None]
